FAERS Safety Report 21039672 (Version 4)
Quarter: 2022Q3

REPORT INFORMATION
  Report Type: Report from Study
  Country: IT (occurrence: IT)
  Receive Date: 20220704
  Receipt Date: 20220921
  Transmission Date: 20221026
  Serious: Yes (Life-Threatening, Hospitalization, Other)
  Sender: FDA-Public Use
  Company Number: IT-BRISTOL-MYERS SQUIBB COMPANY-2022-062830

PATIENT
  Age: 87 Year
  Sex: Female
  Weight: 50 kg

DRUGS (30)
  1. ELIQUIS [Suspect]
     Active Substance: APIXABAN
     Indication: Cerebrovascular accident prophylaxis
     Route: 048
     Dates: start: 20211206, end: 20220411
  2. LASIX [Suspect]
     Active Substance: FUROSEMIDE
     Indication: Cardiac failure
     Route: 048
     Dates: start: 202112
  3. LASIX [Suspect]
     Active Substance: FUROSEMIDE
     Route: 048
     Dates: start: 20220329
  4. LANOXIN [Suspect]
     Active Substance: DIGOXIN
     Indication: Atrial fibrillation
     Dosage: DOSE = 0.125MG (? CP ON ODD DAYS AND 1 TABLET ON EVEN DAYS)
     Route: 048
     Dates: start: 20211211, end: 20220329
  5. FLUTICASONE FUROATE\VILANTEROL TRIFENATATE [Concomitant]
     Active Substance: FLUTICASONE FUROATE\VILANTEROL TRIFENATATE
     Indication: Chronic obstructive pulmonary disease
     Dosage: DOSE = 92+22 MCG (1 PUFF/DAY)
     Route: 065
     Dates: start: 20211124, end: 202204
  6. PANTOPRAZOLE SODIUM [Concomitant]
     Active Substance: PANTOPRAZOLE SODIUM
     Indication: Gastrointestinal disorder prophylaxis
     Route: 048
     Dates: start: 202112
  7. ATORVASTATIN [Concomitant]
     Active Substance: ATORVASTATIN
     Indication: Ischaemic cardiomyopathy
     Route: 048
     Dates: start: 20211124
  8. ESCITALOPRAM OXALATE [Concomitant]
     Active Substance: ESCITALOPRAM OXALATE
     Indication: Depression
     Route: 048
     Dates: start: 20211124
  9. TENORMIN [Concomitant]
     Active Substance: ATENOLOL
     Indication: Product used for unknown indication
     Route: 065
  10. PERINDOPRIL ARGININE [Concomitant]
     Active Substance: PERINDOPRIL ARGININE
     Indication: Product used for unknown indication
     Route: 065
  11. LEVOTHYROXINE SODIUM [Concomitant]
     Active Substance: LEVOTHYROXINE SODIUM
     Indication: Hypothyroidism
     Dosage: 75 MCG ON SATURDAY AND SUNDAY.
     Route: 048
     Dates: start: 20220330, end: 202204
  12. LEVOTHYROXINE SODIUM [Concomitant]
     Active Substance: LEVOTHYROXINE SODIUM
     Dosage: 50 MCG FROM MONDAY TO FRIDAY
     Route: 048
     Dates: start: 20220330, end: 202204
  13. SPIRIVA [Concomitant]
     Active Substance: TIOTROPIUM BROMIDE MONOHYDRATE
     Indication: Chronic obstructive pulmonary disease
     Dosage: FREQUENCY - 2 PUFF/DIE.
     Route: 065
     Dates: start: 202204, end: 202205
  14. FOLIFILL [Concomitant]
     Indication: Product used for unknown indication
     Dosage: FREQUENCY - 1 CP/DIE.
     Route: 065
     Dates: start: 202204, end: 202205
  15. AMOXICILLIN\CLAVULANATE POTASSIUM [Concomitant]
     Active Substance: AMOXICILLIN\CLAVULANATE POTASSIUM
     Indication: Product used for unknown indication
     Dosage: 1750 + 250 MG (TO TAKE FOR 4 DAYS).
     Route: 048
     Dates: start: 202204
  16. ENOXAPARIN SODIUM [Concomitant]
     Active Substance: ENOXAPARIN SODIUM
     Indication: Anaemia
     Dosage: FREQUENCY = 1 FL/DAY.
     Route: 065
     Dates: start: 20220503
  17. ENOXAPARIN SODIUM [Concomitant]
     Active Substance: ENOXAPARIN SODIUM
     Indication: Haematuria
  18. FERRIC CARBOXYMALTOSE [Concomitant]
     Active Substance: FERRIC CARBOXYMALTOSE
     Indication: Anaemia
     Route: 065
  19. METOPROLOL [Concomitant]
     Active Substance: METOPROLOL
     Indication: Anaemia
     Dosage: FREQUENCY = ? CP X 2/DAY.
     Route: 065
     Dates: start: 20220503
  20. METOPROLOL [Concomitant]
     Active Substance: METOPROLOL
     Indication: Haematuria
  21. GOGANZA [Concomitant]
     Indication: Anaemia
     Dosage: FREQUENCY - 1 SACHET X 2/DAY.
     Route: 065
     Dates: start: 20220503
  22. GOGANZA [Concomitant]
     Indication: Haematuria
  23. CANDESARTAN CILEXETIL [Concomitant]
     Active Substance: CANDESARTAN CILEXETIL
     Indication: Anaemia
     Dosage: FREQUENCY =  ? CP/DAY.
     Route: 065
     Dates: start: 20220503
  24. CANDESARTAN CILEXETIL [Concomitant]
     Active Substance: CANDESARTAN CILEXETIL
     Indication: Haematuria
  25. TRELEGY ELLIPTA [Concomitant]
     Active Substance: FLUTICASONE FUROATE\UMECLIDINIUM BROMIDE\VILANTEROL TRIFENATATE
     Indication: Anaemia
     Dosage: DOSE = 92+ 55 + 22 MCG 1 PUFF / DAY.
     Route: 065
     Dates: start: 20220503
  26. TRELEGY ELLIPTA [Concomitant]
     Active Substance: FLUTICASONE FUROATE\UMECLIDINIUM BROMIDE\VILANTEROL TRIFENATATE
     Indication: Haematuria
  27. CANRENONE [Concomitant]
     Active Substance: CANRENONE
     Indication: Anaemia
     Dosage: FREQUENCY = ? CP / DAY.
     Route: 065
     Dates: start: 20220503
  28. CANRENONE [Concomitant]
     Active Substance: CANRENONE
     Indication: Haematuria
  29. ISOPROTERENOL HYDROCHLORIDE [Concomitant]
     Active Substance: ISOPROTERENOL HYDROCHLORIDE
     Indication: Bradycardia
     Route: 065
  30. FOLIFILL [Concomitant]
     Indication: Anaemia
     Route: 048
     Dates: start: 202204, end: 202205

REACTIONS (4)
  - Hypothyroidism [Not Recovered/Not Resolved]
  - Bradycardia [Recovered/Resolved]
  - Bladder cancer recurrent [Not Recovered/Not Resolved]
  - Renal failure [Recovered/Resolved]

NARRATIVE: CASE EVENT DATE: 20220316
